FAERS Safety Report 15484253 (Version 3)
Quarter: 2019Q1

REPORT INFORMATION
  Report Type: Spontaneous
  Country: US (occurrence: US)
  Receive Date: 20181010
  Receipt Date: 20190110
  Transmission Date: 20190417
  Serious: Yes (Other)
  Sender: FDA-Public Use
  Company Number: US-NOVOPROD-613423

PATIENT
  Age: 28 Year
  Sex: Female
  Weight: 61.22 kg

DRUGS (3)
  1. FIASP 3ML PDS290 [Suspect]
     Active Substance: INSULIN ASPART
     Dosage: 20 U, SINGLE
     Route: 058
     Dates: start: 20180726, end: 20180726
  2. FIASP 3ML PDS290 [Suspect]
     Active Substance: INSULIN ASPART
     Indication: TYPE 1 DIABETES MELLITUS
     Dosage: 1-10 UNITS SLIDING SCALE
     Route: 058
     Dates: start: 2018
  3. TRESIBA [Suspect]
     Active Substance: INSULIN DEGLUDEC
     Indication: TYPE 1 DIABETES MELLITUS
     Dosage: 20 U, UNK
     Route: 058
     Dates: start: 201801

REACTIONS (4)
  - Hypoglycaemic seizure [Recovered/Resolved]
  - Wrong product administered [Recovered/Resolved]
  - Fall [Recovered/Resolved]
  - Product label confusion [Unknown]

NARRATIVE: CASE EVENT DATE: 20180726
